FAERS Safety Report 25225357 (Version 2)
Quarter: 2025Q2

REPORT INFORMATION
  Report Type: Spontaneous
  Country: AR (occurrence: AR)
  Receive Date: 20250422
  Receipt Date: 20250527
  Transmission Date: 20250717
  Serious: Yes (Death, Hospitalization)
  Sender: SANDOZ
  Company Number: AR-002147023-NVSC2025AR006175

PATIENT
  Sex: Female

DRUGS (4)
  1. KISQALI [Suspect]
     Active Substance: RIBOCICLIB SUCCINATE
     Indication: Bone cancer
     Route: 048
     Dates: start: 202409
  2. KISQALI [Suspect]
     Active Substance: RIBOCICLIB SUCCINATE
     Indication: Breast cancer metastatic
     Route: 065
     Dates: start: 20240711
  3. LETROZOLE [Suspect]
     Active Substance: LETROZOLE
     Indication: Breast cancer metastatic
     Dosage: 1 DOSAGE FORM, QD
     Route: 065
     Dates: start: 20240711
  4. ZOLEDRONIC ACID [Suspect]
     Active Substance: ZOLEDRONIC ACID
     Indication: Product used for unknown indication
     Route: 065

REACTIONS (8)
  - Death [Fatal]
  - Metastases to stomach [Unknown]
  - Axillary pain [Unknown]
  - Gait disturbance [Unknown]
  - Bone disorder [Unknown]
  - Chest pain [Unknown]
  - Arthralgia [Unknown]
  - Off label use [Unknown]
